FAERS Safety Report 25137778 (Version 2)
Quarter: 2025Q2

REPORT INFORMATION
  Report Type: Spontaneous
  Country: GR (occurrence: GR)
  Receive Date: 20250329
  Receipt Date: 20250415
  Transmission Date: 20250716
  Serious: Yes (Other)
  Sender: AUROBINDO
  Company Number: GR-MYLANLABS-2025M1020494

PATIENT
  Age: 28 Year
  Sex: Female

DRUGS (4)
  1. OLANZAPINE [Suspect]
     Active Substance: OLANZAPINE
     Indication: Psychotic disorder
     Route: 065
  2. OLANZAPINE [Suspect]
     Active Substance: OLANZAPINE
     Route: 065
  3. RISPERDAL [Suspect]
     Active Substance: RISPERIDONE
     Indication: Psychotic disorder
     Route: 065
  4. RISPERDAL [Suspect]
     Active Substance: RISPERIDONE
     Route: 065

REACTIONS (5)
  - Hallucination, auditory [Unknown]
  - Weight increased [Recovered/Resolved]
  - Amenorrhoea [Recovered/Resolved]
  - Feeling abnormal [Unknown]
  - Drug ineffective [Unknown]
